FAERS Safety Report 16194759 (Version 1)
Quarter: 2019Q2

REPORT INFORMATION
  Report Type: Report from Study
  Country: None (occurrence: BR)
  Receive Date: 20190414
  Receipt Date: 20190414
  Transmission Date: 20190711
  Serious: Yes (Hospitalization, Other)
  Sender: FDA-Public Use
  Company Number: BR-ABBVIE-18K-020-2521968-00

PATIENT
  Age: 47 Year
  Sex: Female
  Weight: 70 kg

DRUGS (3)
  1. ANADOR [Concomitant]
     Indication: PRODUCT USED FOR UNKNOWN INDICATION
     Route: 048
  2. HUMIRA [Suspect]
     Active Substance: ADALIMUMAB
     Indication: ANKYLOSING SPONDYLITIS
     Route: 058
     Dates: start: 20100108, end: 201711
  3. DORIL [Concomitant]
     Indication: PRODUCT USED FOR UNKNOWN INDICATION
     Route: 048

REACTIONS (5)
  - Pulmonary tuberculosis [Recovered/Resolved]
  - Gastritis [Unknown]
  - Abdominal distension [Unknown]
  - Pain [Unknown]
  - Peritoneal tuberculosis [Recovered/Resolved]

NARRATIVE: CASE EVENT DATE: 20180101
